FAERS Safety Report 16227189 (Version 2)
Quarter: 2019Q3

REPORT INFORMATION
  Report Type: Report from Study
  Country: JP (occurrence: JP)
  Receive Date: 20190423
  Receipt Date: 20190826
  Transmission Date: 20191004
  Serious: Yes (Hospitalization)
  Sender: FDA-Public Use
  Company Number: JP-BIOGEN-2018BI00527137

PATIENT
  Age: 4 Year
  Sex: Male
  Weight: 17.5 kg

DRUGS (15)
  1. SOSEGON [Concomitant]
     Active Substance: PENTAZOCINE
     Indication: ANAESTHESIA PROCEDURE
     Route: 042
     Dates: start: 20181017, end: 20181017
  2. ATARAX-P [Concomitant]
     Active Substance: HYDROXYZINE HYDROCHLORIDE
     Indication: ANAESTHESIA PROCEDURE
     Route: 042
     Dates: start: 20181017, end: 20181017
  3. EMLA [Concomitant]
     Active Substance: LIDOCAINE\PRILOCAINE
     Indication: ANAESTHESIA PROCEDURE
     Route: 050
     Dates: start: 20180117, end: 20180117
  4. EMLA [Concomitant]
     Active Substance: LIDOCAINE\PRILOCAINE
     Route: 050
     Dates: start: 20180214, end: 20180214
  5. SPINRAZA [Suspect]
     Active Substance: NUSINERSEN
     Route: 050
     Dates: start: 20181017, end: 20181017
  6. XYLOCAINE [Concomitant]
     Active Substance: LIDOCAINE HYDROCHLORIDE
     Indication: ANAESTHESIA PROCEDURE
     Route: 058
     Dates: start: 20181017, end: 20181017
  7. SPINRAZA [Suspect]
     Active Substance: NUSINERSEN
     Indication: SPINAL MUSCULAR ATROPHY
     Route: 050
     Dates: start: 20180117, end: 20180117
  8. SPINRAZA [Suspect]
     Active Substance: NUSINERSEN
     Route: 050
     Dates: start: 20180411, end: 20180411
  9. RAVONAL [Concomitant]
     Active Substance: THIOPENTAL
     Dates: start: 20180411, end: 20180411
  10. RAVONAL [Concomitant]
     Active Substance: THIOPENTAL
     Dates: start: 20180214, end: 20180214
  11. SPINRAZA [Suspect]
     Active Substance: NUSINERSEN
     Route: 050
     Dates: start: 20180214, end: 20180214
  12. EMLA [Concomitant]
     Active Substance: LIDOCAINE\PRILOCAINE
     Route: 050
     Dates: start: 20180411, end: 20180411
  13. RAVONAL [Concomitant]
     Active Substance: THIOPENTAL
     Route: 042
     Dates: start: 20181017, end: 20181017
  14. EMLA [Concomitant]
     Active Substance: LIDOCAINE\PRILOCAINE
     Route: 062
     Dates: start: 20181017, end: 20181017
  15. RAVONAL [Concomitant]
     Active Substance: THIOPENTAL
     Indication: ANAESTHESIA PROCEDURE
     Dates: start: 20180117, end: 20180117

REACTIONS (2)
  - Back pain [Recovered/Resolved]
  - Kawasaki^s disease [Unknown]

NARRATIVE: CASE EVENT DATE: 20180215
